FAERS Safety Report 13927100 (Version 2)
Quarter: 2017Q4

REPORT INFORMATION
  Report Type: Spontaneous
  Country: US (occurrence: US)
  Receive Date: 20170901
  Receipt Date: 20171005
  Transmission Date: 20180320
  Serious: No
  Sender: FDA-Public Use
  Company Number: US-PFIZER INC-2017376062

PATIENT
  Age: 54 Year
  Sex: Female

DRUGS (4)
  1. KENALOG [Suspect]
     Active Substance: TRIAMCINOLONE ACETONIDE
     Indication: RHEUMATOID ARTHRITIS
     Dosage: 10 MG, UNK
  2. FERREX [Suspect]
     Active Substance: FERRIC POLYSACCHARIDE COMPLEX
     Indication: RHEUMATOID ARTHRITIS
     Dosage: 150 MG, UNK
  3. METHOTREXATE SODIUM. [Suspect]
     Active Substance: METHOTREXATE SODIUM
     Indication: RHEUMATOID ARTHRITIS
     Dosage: UNK
     Dates: start: 2016
  4. CLOBETASOL [Suspect]
     Active Substance: CLOBETASOL
     Indication: RHEUMATOID ARTHRITIS
     Dosage: UNK (SOLUTION)

REACTIONS (1)
  - Drug ineffective [Unknown]
